FAERS Safety Report 12691185 (Version 1)
Quarter: 2016Q3

REPORT INFORMATION
  Report Type: Spontaneous
  Country: US (occurrence: US)
  Receive Date: 20160826
  Receipt Date: 20160826
  Transmission Date: 20161109
  Serious: Yes (Other)
  Sender: FDA-Public Use
  Company Number: US-BAYER-2016-165275

PATIENT
  Age: 35 Year
  Sex: Female

DRUGS (1)
  1. MIRENA [Suspect]
     Active Substance: LEVONORGESTREL
     Dosage: 20 MCG/24HR, CONT
     Route: 015
     Dates: start: 20150522, end: 20160817

REACTIONS (6)
  - Vaginal odour [None]
  - Ovarian cyst [None]
  - Pelvic inflammatory disease [None]
  - Vaginal discharge [None]
  - Pelvic pain [None]
  - Dyspareunia [None]

NARRATIVE: CASE EVENT DATE: 20160519
